FAERS Safety Report 9719169 (Version 1)
Quarter: 2013Q4

REPORT INFORMATION
  Report Type: Spontaneous
  Country: GR (occurrence: GR)
  Receive Date: 20131127
  Receipt Date: 20131127
  Transmission Date: 20140711
  Serious: Yes (Hospitalization)
  Sender: FDA-Public Use
  Company Number: PHHY2013GR133351

PATIENT
  Age: 68 Year
  Sex: Female

DRUGS (1)
  1. LEVOFLOXACIN [Suspect]
     Indication: ERYSIPELAS
     Route: 048

REACTIONS (11)
  - Kounis syndrome [Recovering/Resolving]
  - Chest pain [Recovering/Resolving]
  - Dyspnoea [Recovering/Resolving]
  - Nausea [Recovering/Resolving]
  - Vomiting [Recovering/Resolving]
  - Generalised erythema [Recovering/Resolving]
  - Urticaria [Recovering/Resolving]
  - Electrocardiogram ST segment depression [Recovering/Resolving]
  - Eosinophilia [Recovering/Resolving]
  - Left ventricular hypertrophy [Recovering/Resolving]
  - Coronary artery stenosis [Unknown]
